FAERS Safety Report 12489210 (Version 1)
Quarter: 2016Q2

REPORT INFORMATION
  Report Type: Spontaneous
  Country: BR (occurrence: BR)
  Receive Date: 20160622
  Receipt Date: 20160622
  Transmission Date: 20160815
  Serious: Yes (Other)
  Sender: FDA-Public Use
  Company Number: BR-ELI_LILLY_AND_COMPANY-BR201606004760

PATIENT
  Age: 72 Year
  Sex: Female
  Weight: 68 kg

DRUGS (7)
  1. HUMULIN R [Suspect]
     Active Substance: INSULIN HUMAN
     Indication: PRODUCT USED FOR UNKNOWN INDICATION
     Dosage: 8 IU, EACH MORNING
     Route: 058
     Dates: start: 1999
  2. HUMULIN R [Suspect]
     Active Substance: INSULIN HUMAN
     Dosage: 8 IU, QD
     Route: 058
     Dates: start: 1999
  3. HUMULIN R [Suspect]
     Active Substance: INSULIN HUMAN
     Dosage: 6 IU, EACH EVENING
     Route: 058
     Dates: start: 1999
  4. HUMULIN N [Suspect]
     Active Substance: INSULIN HUMAN
     Dosage: 26 IU, EACH EVENING
     Route: 058
     Dates: start: 1999
  5. HUMULIN N [Suspect]
     Active Substance: INSULIN HUMAN
     Indication: PRODUCT USED FOR UNKNOWN INDICATION
     Dosage: 34 IU, EACH MORNING
     Route: 058
     Dates: start: 1999
  6. GLIFAGE [Concomitant]
     Active Substance: METFORMIN HYDROCHLORIDE
     Dosage: UNK, UNKNOWN
     Route: 065
  7. RIVOTRIL [Concomitant]
     Active Substance: CLONAZEPAM
     Dosage: UNK, UNKNOWN
     Route: 065

REACTIONS (7)
  - Polyneuropathy [Unknown]
  - Glaucoma [Unknown]
  - Drug dose omission [Not Recovered/Not Resolved]
  - Blood glucose increased [Unknown]
  - Stress [Unknown]
  - Myocardial infarction [Unknown]
  - Angina pectoris [Unknown]

NARRATIVE: CASE EVENT DATE: 2010
